FAERS Safety Report 24953644 (Version 2)
Quarter: 2025Q1

REPORT INFORMATION
  Report Type: Spontaneous
  Country: PT (occurrence: PT)
  Receive Date: 20250211
  Receipt Date: 20250227
  Transmission Date: 20250408
  Serious: Yes (Other)
  Sender: AUROBINDO
  Company Number: PT-MLMSERVICE-20250124-PI375296-00270-1

PATIENT
  Age: 55 Year
  Sex: Male

DRUGS (4)
  1. PREDNISOLONE [Suspect]
     Active Substance: PREDNISOLONE
     Indication: Spondylitis
     Dosage: 5 MILLIGRAM, ONCE A DAY
     Route: 065
  2. ACEMETACIN [Concomitant]
     Active Substance: ACEMETACIN
     Indication: Spondylitis
     Route: 065
  3. CALCIUM [Concomitant]
     Active Substance: CALCIUM
     Indication: Spondylitis
     Dosage: 1500 MILLIGRAM, ONCE A DAY
     Route: 065
  4. VITAMIN D [Concomitant]
     Active Substance: VITAMIN D NOS
     Indication: Spondylitis
     Dosage: 880 INTERNATIONAL UNIT, ONCE A DAY
     Route: 065

REACTIONS (1)
  - Osteonecrosis [Unknown]
